FAERS Safety Report 11869114 (Version 1)
Quarter: 2015Q4

REPORT INFORMATION
  Report Type: Spontaneous
  Country: FR (occurrence: FR)
  Receive Date: 20151226
  Receipt Date: 20151226
  Transmission Date: 20160305
  Serious: Yes (Hospitalization, Other)
  Sender: FDA-Public Use
  Company Number: FR-ZYDUS-009800

PATIENT
  Age: 25 Year
  Sex: Male

DRUGS (3)
  1. ZUCLOPENTHIXOL/ZUCLOPENTHIXOL ACETATE/ZUCLOPENTHIXOL DECANOATE/ZUCLOPENTHIXOL HYDROCHLORIDE [Suspect]
     Active Substance: ZUCLOPENTHIXOL
     Indication: PSYCHOTIC DISORDER
     Route: 030
  2. LOXAPINE/LOXAPINE HYDROCHLORIDE/LOXAPINE SUCCINATE [Suspect]
     Active Substance: LOXAPINE
     Indication: PSYCHOTIC DISORDER
     Route: 065
  3. RISPERIDONE. [Suspect]
     Active Substance: RISPERIDONE
     Indication: PSYCHOTIC DISORDER
     Route: 048

REACTIONS (5)
  - Renal tubular necrosis [None]
  - Rhabdomyolysis [Recovered/Resolved]
  - Deep vein thrombosis [Recovering/Resolving]
  - Agitation [None]
  - Acute kidney injury [Unknown]
